FAERS Safety Report 4748514-9 (Version None)
Quarter: 2005Q3

REPORT INFORMATION
  Report Type: 
  Country: None (occurrence: None)
  Receive Date: 20050818
  Receipt Date: 20050818
  Transmission Date: 20060218
  Serious: Yes (Other)
  Sender: FDA-Public Use
  Company Number: None

PATIENT
  Age: 58 Year
  Sex: Female
  Weight: 81.6475 kg

DRUGS (1)
  1. MUCINEX [Suspect]
     Dosage: 1 PILL  ONCE  ORAL
     Route: 048
     Dates: start: 20050814, end: 20050814

REACTIONS (3)
  - ANGINA PECTORIS [None]
  - HEADACHE [None]
  - HYPERTENSION [None]
